FAERS Safety Report 9869018 (Version 2)
Quarter: 2014Q1

REPORT INFORMATION
  Report Type: Spontaneous
  Country: US (occurrence: US)
  Receive Date: 20140205
  Receipt Date: 20140205
  Transmission Date: 20141002
  Serious: Yes (Death)
  Sender: FDA-Public Use
  Company Number: US-BEH-2013038349

PATIENT
  Age: 56 Year
  Sex: Male
  Weight: 117 kg

DRUGS (1)
  1. ZEMAIRA [Suspect]

REACTIONS (1)
  - Death [Fatal]
